FAERS Safety Report 9426547 (Version 3)
Quarter: 2013Q3

REPORT INFORMATION
  Report Type: Spontaneous
  Country: PT (occurrence: PT)
  Receive Date: 20130730
  Receipt Date: 20130910
  Transmission Date: 20140515
  Serious: Yes (Life-Threatening, Hospitalization, Disabling)
  Sender: FDA-Public Use
  Company Number: PT-CELGENEUS-130-21880-13072390

PATIENT
  Age: 94 Year
  Sex: Female
  Weight: 81 kg

DRUGS (12)
  1. REVLIMID [Suspect]
     Indication: PLASMA CELL MYELOMA
     Dosage: 25 MILLIGRAM
     Route: 048
     Dates: start: 20130522, end: 20130709
  2. MLN9708/PLACEBO [Suspect]
     Indication: PLASMA CELL MYELOMA
     Dosage: DAYS 1, 8, 15
     Route: 048
     Dates: start: 20130522, end: 20130703
  3. DEXAMETHASONE [Suspect]
     Indication: PLASMA CELL MYELOMA
     Dosage: DAYS 1, 8, 15, 22
     Route: 048
     Dates: start: 20130522, end: 20130710
  4. DEXAMETHASONE [Suspect]
     Dosage: DAYS 1, 8, 15, 22
     Route: 048
     Dates: start: 20130710
  5. SEVREDOL [Concomitant]
     Indication: FRACTURE
     Route: 048
     Dates: start: 20130605
  6. SEVREDOL [Concomitant]
     Route: 048
     Dates: start: 20130417
  7. PANTOPRAZOLE [Concomitant]
     Indication: GASTRITIS
     Dosage: 40 MILLIGRAM
     Route: 048
  8. ETORICOXIB [Concomitant]
     Indication: MUSCULOSKELETAL PAIN
     Dosage: 60 MILLIGRAM
     Route: 048
     Dates: start: 20130503
  9. ENOXAPARIN [Concomitant]
     Indication: EMBOLISM
     Dosage: 60 MILLIGRAM
     Route: 048
     Dates: start: 20130503
  10. CARVEDILOL [Concomitant]
     Indication: CARDIAC FAILURE
     Route: 048
     Dates: start: 20130619
  11. NYSTATIN [Concomitant]
     Indication: APHTHOUS STOMATITIS
     Route: 050
     Dates: start: 20130710
  12. MACROGOL [Concomitant]
     Indication: CONSTIPATION
     Route: 065
     Dates: start: 20130724

REACTIONS (1)
  - Sepsis [Recovered/Resolved with Sequelae]
